FAERS Safety Report 15389703 (Version 2)
Quarter: 2020Q1

REPORT INFORMATION
  Report Type: Report from Study
  Country: None (occurrence: JP)
  Receive Date: 20180917
  Receipt Date: 20200306
  Transmission Date: 20200409
  Serious: Yes (Hospitalization, Other)
  Sender: FDA-Public Use
  Company Number: JP-ABBVIE-18S-087-2485743-00

PATIENT
  Age: 72 Year
  Sex: Female
  Weight: 43 kg

DRUGS (6)
  1. ROPINIROLE HYDROCHLORIDE. [Concomitant]
     Active Substance: ROPINIROLE HYDROCHLORIDE
     Indication: PARKINSON^S DISEASE
     Route: 048
  2. WARFARIN POTASSIUM [Concomitant]
     Active Substance: WARFARIN POTASSIUM
     Indication: PROPHYLAXIS
     Route: 048
     Dates: start: 20190112
  3. DUODOPA [Suspect]
     Active Substance: CARBIDOPA\LEVODOPA
     Indication: PARKINSON^S DISEASE
     Dosage: MD: 4 ML, CD: 3.3 ML/HR X 16 HR, ED: 1 ML/UNIT X2
     Route: 050
     Dates: start: 20170808, end: 20170815
  4. DUODOPA [Suspect]
     Active Substance: CARBIDOPA\LEVODOPA
     Dosage: MD: 6 ML, CD: 2.8 ML/HR ? 16 HRS, ED: 1 ML/UNIT ? 5 TIMES
     Route: 050
     Dates: start: 20170914
  5. DUODOPA [Suspect]
     Active Substance: CARBIDOPA\LEVODOPA
     Dosage: MD: 6 ML, CD: 2.8 ML/HR X 16 HR, ED: 1 ML/UNIT X2
     Route: 050
     Dates: start: 20170815, end: 20170909
  6. EDOXABAN TOSILATE HYDRATE [Concomitant]
     Active Substance: EDOXABAN TOSYLATE
     Indication: PROPHYLAXIS
     Route: 048
     Dates: end: 20190112

REACTIONS (8)
  - Haemolytic anaemia [Unknown]
  - Stoma site extravasation [Unknown]
  - Device connection issue [Recovered/Resolved]
  - Device dislocation [Unknown]
  - Device breakage [Unknown]
  - Tibia fracture [Recovering/Resolving]
  - Pain [Unknown]
  - Abdominal pain lower [Recovering/Resolving]

NARRATIVE: CASE EVENT DATE: 20170820
